FAERS Safety Report 5564690-2 (Version None)
Quarter: 2007Q4

REPORT INFORMATION
  Report Type: 
  Country: None (occurrence: None)
  Receive Date: 20071212
  Receipt Date: 20071205
  Transmission Date: 20080405
  Serious: Yes (Hospitalization, Other)
  Sender: FDA-Public Use
  Company Number: 2005-04-1185

PATIENT
  Age: 57 Year
  Sex: Female
  Weight: 48 kg

DRUGS (6)
  1. PEG-INTRON [Suspect]
     Indication: HEPATITIS C
     Dosage: 80 MCG; QW; SC
     Route: 058
     Dates: start: 20050104, end: 20050118
  2. REBETOL [Suspect]
     Indication: HEPATITIS C
     Dosage: 600 MG; PO; 400 MG; PO
     Route: 048
     Dates: start: 20050104, end: 20050118
  3. REBETOL [Suspect]
     Indication: HEPATITIS C
     Dosage: 600 MG; PO; 400 MG; PO
     Route: 048
     Dates: start: 20040409
  4. INTRON A [Suspect]
     Indication: HEPATITIS C
     Dosage: 6 MIU; QD; IM; 6 MIU; TIW; IM
     Route: 030
     Dates: start: 20040409, end: 20040422
  5. INTRON A [Suspect]
     Indication: HEPATITIS C
     Dosage: 6 MIU; QD; IM; 6 MIU; TIW; IM
     Route: 030
     Dates: start: 20040424, end: 20041005
  6. GASTER [Concomitant]

REACTIONS (7)
  - APPENDICITIS [None]
  - BLOOD COUNT ABNORMAL [None]
  - ENTEROCOCCAL SEPSIS [None]
  - EPIGASTRIC DISCOMFORT [None]
  - LARGE INTESTINE PERFORATION [None]
  - NEUTROPHIL COUNT DECREASED [None]
  - PELVIC ABSCESS [None]
